FAERS Safety Report 5489560-X (Version None)
Quarter: 2007Q4

REPORT INFORMATION
  Report Type: 
  Country: None (occurrence: None)
  Receive Date: 20071009
  Receipt Date: 20070511
  Transmission Date: 20080405
  Serious: Yes (Other)
  Sender: FDA-Public Use
  Company Number: PHEH2007US07361

PATIENT
  Age: 52 Year
  Sex: Female
  Weight: 60.8 kg

DRUGS (11)
  1. COMBIPATCH [Suspect]
     Indication: MENOPAUSE
     Dosage: 50/140 MCG BIW, TOPICAL
     Route: 061
     Dates: start: 20000701, end: 20010201
  2. PREMPHASE (PREMARIN;CYCRIN 14/14) [Suspect]
     Indication: MENOPAUSE
     Dosage: 0.625MG
     Dates: start: 19990301, end: 20000201
  3. PREFEST [Suspect]
     Indication: MENOPAUSE
     Dosage: 1-0.9MG
     Dates: start: 20010501, end: 20030401
  4. PREMARIN [Suspect]
     Indication: MENSTRUATION IRREGULAR
     Dosage: INJECTION NOS
     Dates: start: 19800101, end: 19800101
  5. ESTRING [Suspect]
     Indication: VULVOVAGINAL DRYNESS
     Dosage: 7.5MG Q3MO, TOPICAL
     Route: 061
     Dates: start: 20031101, end: 20041001
  6. PROVERA [Suspect]
     Indication: MENOPAUSE
     Dosage: 10MG, QD
     Dates: start: 19860101
  7. ESTRADIOL [Suspect]
     Indication: MENOPAUSE
     Dosage: 1CC-20MG, INJECTION NOS
     Dates: start: 19980101
  8. SYNTHROID (LEVOTHYROXNE SODIUM) [Concomitant]
  9. WELLBUTRIN [Concomitant]
  10. EFFEXOR [Concomitant]
  11. PROZAC [Concomitant]

REACTIONS (10)
  - BREAST CANCER STAGE II [None]
  - BREAST RECONSTRUCTION [None]
  - CHEMOTHERAPY [None]
  - DEPRESSION [None]
  - JOINT RANGE OF MOTION DECREASED [None]
  - LOSS OF LIBIDO [None]
  - LYMPHADENECTOMY [None]
  - MODIFIED RADICAL MASTECTOMY [None]
  - MUSCULOSKELETAL PAIN [None]
  - VULVOVAGINAL DRYNESS [None]
